FAERS Safety Report 7546919-4 (Version None)
Quarter: 2011Q2

REPORT INFORMATION
  Report Type: 
  Country: None (occurrence: None)
  Receive Date: 20110614
  Receipt Date: 20110531
  Transmission Date: 20111010
  Serious: Yes (Disabling)
  Sender: FDA-Public Use
  Company Number: IT-CELGENEUS-083-20785-11060698

PATIENT
  Age: 66 Year
  Sex: Female
  Weight: 60 kg

DRUGS (3)
  1. ALKERAN [Suspect]
     Route: 065
  2. THALIDOMIDE [Suspect]
     Dates: start: 20100501, end: 20101201
  3. DEXAMETHASONE [Suspect]
     Route: 065

REACTIONS (2)
  - RENAL FAILURE [None]
  - BONE DISORDER [None]
